FAERS Safety Report 13623552 (Version 1)
Quarter: 2017Q2

REPORT INFORMATION
  Report Type: Spontaneous
  Country: US (occurrence: US)
  Receive Date: 20170607
  Receipt Date: 20170607
  Transmission Date: 20170830
  Serious: Yes (Death, Hospitalization)
  Sender: FDA-Public Use
  Company Number: US-B.I. PHARMACEUTICALS,INC./RIDGEFIELD-2017-BI-031681

PATIENT
  Sex: Male

DRUGS (31)
  1. TIOTROPIUM BROMIDE (SPIRIVA HANDIHALER 18MCG) [Concomitant]
     Dosage: 2 PUFFS; 0 MULTIDOSE INH
     Route: 055
  2. WARFARIN SODIUM (COUMADIN) [Concomitant]
     Indication: PRODUCT USED FOR UNKNOWN INDICATION
     Dosage: HAS BEEN TAKING DAILY FOR THE LAST FOUR DAYS
     Route: 048
  3. METOCLOPRAMIDE HCL (REGLAN INJ) [Concomitant]
     Indication: NAUSEA
     Route: 042
  4. PROMETHAZINE HCL (PHENERGAN-PROMETHAZINE) [Concomitant]
     Indication: VOMITING
     Dosage: DOSE: 12.5-25 MG; MUST BE FURTHER DILUTED FOR IV USE
     Route: 030
  5. ACETAMINOPHEN WITH CODEINE (TYLENOL #3) [Concomitant]
     Indication: PAIN
     Dosage: DOSE: 1-2 TAB; MAX APAP 4 GM/24HRS
     Route: 048
  6. LANOXIN [Concomitant]
     Active Substance: DIGOXIN
     Indication: PRODUCT USED FOR UNKNOWN INDICATION
     Route: 048
  7. DELTASONE [Concomitant]
     Active Substance: PREDNISONE
     Indication: PRODUCT USED FOR UNKNOWN INDICATION
     Route: 048
  8. LABETALOL HCL (TRANDATE: NORMODYNE) [Concomitant]
     Indication: BLOOD PRESSURE SYSTOLIC INCREASED
     Dosage: DOSE: 10-20 MG
     Route: 042
  9. FLUTICASONE/SALMETEROL (ADVAIR 250-50 DISKUS) [Concomitant]
     Indication: PRODUCT USED FOR UNKNOWN INDICATION
     Dosage: 250-50
     Route: 055
  10. METHYPREDNISOLONE SOD SUCC (SOLUMEDROL A-METHAPRED) [Concomitant]
     Route: 042
  11. ACETAMINOPHEN (TYLENOL 325 MG TAB) [Concomitant]
     Indication: PAIN
     Dosage: DOSE: 325-650 MG; NO MORE THAN 4 GM APAP/24 HRS
     Route: 048
  12. ALBUTEROL MDI (VENTOLIN HFA INHALER) [Concomitant]
     Indication: WHEEZING
     Dosage: 0 MULTIDOSE INH; USE WITH SPACER, EACH PUFF 5 MINUTES APART; DOSE: 2 PUFFS (90MCG ALBUTEROL/PUFF)
     Route: 055
  13. CALCIUM CARBONATE (TUMS 500 MG CALCIUM CO3) [Concomitant]
     Indication: DYSPEPSIA
     Dosage: DOSE: 500-1000 MG
     Route: 048
  14. METOCLOPRAMIDE HCL (REGLAN INJ) [Concomitant]
     Indication: VOMITING
  15. METHYPREDNISOLONE SOD SUCC (SOLUMEDROL A-METHAPRED) [Concomitant]
     Indication: PRODUCT USED FOR UNKNOWN INDICATION
     Route: 042
  16. PANTOPRAZOLE SODIUM (PROTONIX) [Concomitant]
     Indication: PRODUCT USED FOR UNKNOWN INDICATION
     Dosage: NORMAL SALINE 10 ML; FINAL CONC: 4 MG/ML (GIVE OVER AT LEAST 2 MINUTES)
     Route: 065
  17. SODIUM CHLORIDE 3% (3% SODIUM CHLORIDE HYPERTONIC) [Concomitant]
     Indication: PRODUCT USED FOR UNKNOWN INDICATION
     Route: 042
  18. MORPHINE SULFATE (MORPHINE) [Concomitant]
     Indication: PAIN
     Dosage: 2 MG SLOW IVP OVER 2-4 MIN LOADING LOSE; MAY GIVE 1 MG EVERY 8 MIN; MAX DOSE OF 15 MG WITHIN 2HR
     Route: 042
  19. ONDANSETRON HCL/PF (ZOFRAN) [Concomitant]
     Indication: VOMITING
     Route: 042
  20. LANOXIN [Concomitant]
     Active Substance: DIGOXIN
     Dosage: HOLD UNTIL DIG LEVEL IS BACK
     Route: 042
  21. TIOTROPIUM BROMIDE (SPIRIVA HANDIHALER 18MCG) [Concomitant]
     Indication: PRODUCT USED FOR UNKNOWN INDICATION
     Dosage: DOSE: 1 MULTIDOSE INH
     Route: 055
  22. CEFAZOLIN (KEFZOL: ANCEF) [Concomitant]
     Indication: PRODUCT USED FOR UNKNOWN INDICATION
     Dosage: SODIUM CHLORIDE 0.9% ADVB (NACL 0.9% ADV)
     Route: 065
  23. PROMETHAZINE HCL (PHENERGAN-PROMETHAZINE) [Concomitant]
     Indication: NAUSEA
     Dosage: DOSE: 12.5-25 MG; MUST BE FURTHER DILUTED FOR IV USE
     Route: 042
  24. PRADAXA [Suspect]
     Active Substance: DABIGATRAN ETEXILATE MESYLATE
     Indication: PRODUCT USED FOR UNKNOWN INDICATION
     Route: 048
     Dates: start: 201107
  25. FLUTICASONE/SALMETEROL (ADVAIR 250-50 DISKUS) [Concomitant]
     Dosage: DOSE: 1 PUFF; 0 MULTIDOSE INH BIDRT
     Route: 055
  26. IPRATROPIUM/ALBUTEROL NEB (DUONEB) [Concomitant]
     Indication: PRODUCT USED FOR UNKNOWN INDICATION
     Route: 055
  27. LACTATED RINGERS SOLUTION (LACTATED RINGER^S) [Concomitant]
     Indication: PRODUCT USED FOR UNKNOWN INDICATION
     Route: 042
  28. ACETAMINOPHEN WITH CODEINE (TYLENOL #3) [Concomitant]
     Indication: ORAL PAIN
  29. MAGNESIUM HYDROXIDE (MILK OF MAGNESIA CONCENTRATE) [Concomitant]
     Indication: CONSTIPATION
     Dosage: 10 ML CONC = 30 ML REGULAR MOM
     Route: 048
  30. MAGNESIUM HYDROXIDE (MILK OF MAGNESIA CONCENTRATE) [Concomitant]
     Indication: GASTROOESOPHAGEAL REFLUX DISEASE
     Dosage: DOSE: 5-10 ML; 10 ML CONC = 30 ML REGULAR MOM
     Route: 048
  31. MAGNESIUM HYDROXIDE (MILK OF MAGNESIA CONCENTRATE) [Concomitant]
     Indication: GASTRIC PH DECREASED

REACTIONS (4)
  - Subdural haematoma [Fatal]
  - Chronic obstructive pulmonary disease [Fatal]
  - Respiratory failure [Fatal]
  - Subdural haemorrhage [Fatal]
